FAERS Safety Report 5304313-0 (Version None)
Quarter: 2007Q2

REPORT INFORMATION
  Report Type: 
  Country: None (occurrence: None)
  Receive Date: 20070423
  Receipt Date: 20070411
  Transmission Date: 20071010
  Serious: Yes (Other)
  Sender: FDA-Public Use
  Company Number: PHBS2007JP06492

PATIENT
  Age: 58 Year
  Sex: Female

DRUGS (1)
  1. LAMISIL [Suspect]
     Indication: TINEA PEDIS
     Dosage: 125 MG/DAY
     Route: 048
     Dates: start: 20070305, end: 20070406

REACTIONS (4)
  - APHTHOUS STOMATITIS [None]
  - OEDEMA MOUTH [None]
  - PERIORBITAL OEDEMA [None]
  - STOMATITIS [None]
